FAERS Safety Report 4594314-2 (Version None)
Quarter: 2005Q1

REPORT INFORMATION
  Report Type: 
  Country: None (occurrence: None)
  Receive Date: 20050301
  Receipt Date: 20041005
  Transmission Date: 20050727
  Serious: No
  Sender: FDA-Public Use
  Company Number: US-GLAXOSMITHKLINE-A0528529A

PATIENT
  Age: 47 Year
  Sex: Female

DRUGS (19)
  1. VALTREX [Suspect]
     Indication: ILL-DEFINED DISORDER
     Dosage: 1000MG PER DAY
     Route: 048
  2. DURAGESIC-100 [Concomitant]
  3. PROZAC [Concomitant]
  4. WELLBUTRIN [Concomitant]
  5. RITALIN [Concomitant]
  6. CLONIDINE [Concomitant]
  7. VIOXX [Concomitant]
  8. TEMAZEPAM [Concomitant]
  9. FLONASE [Concomitant]
  10. IRON [Concomitant]
  11. VITAMIN B-12 [Concomitant]
  12. FOLIC ACID [Concomitant]
  13. VITAMIN B6 [Concomitant]
  14. CALCIUM GLUCONATE [Concomitant]
  15. BENZOCAINE [Concomitant]
  16. MAGNESIUM [Concomitant]
  17. VITAMIN E [Concomitant]
  18. PROTEIN SUPPLEMENTS [Concomitant]
  19. MULTI-VITAMIN [Concomitant]

REACTIONS (4)
  - DEPRESSION [None]
  - FATIGUE [None]
  - FOREIGN BODY TRAUMA [None]
  - VOMITING [None]
